FAERS Safety Report 25329265 (Version 6)
Quarter: 2025Q2

REPORT INFORMATION
  Report Type: Report from Study
  Country: CA (occurrence: CA)
  Receive Date: 20250519
  Receipt Date: 20250627
  Transmission Date: 20250716
  Serious: Yes (Other)
  Sender: JOHNSON AND JOHNSON
  Company Number: CA-JNJFOC-20250507175

PATIENT
  Age: 60 Year
  Sex: Female
  Weight: 65.5 kg

DRUGS (4)
  1. RYBREVANT [Suspect]
     Active Substance: AMIVANTAMAB-VMJW
     Indication: Non-small cell lung cancer
     Route: 042
     Dates: start: 20250506
  2. RYBREVANT [Suspect]
     Active Substance: AMIVANTAMAB-VMJW
     Indication: Non-small cell lung cancer metastatic
     Route: 042
  3. RYBREVANT [Suspect]
     Active Substance: AMIVANTAMAB-VMJW
     Route: 065
     Dates: start: 20250528
  4. RYBREVANT [Suspect]
     Active Substance: AMIVANTAMAB-VMJW
     Dates: start: 20250618

REACTIONS (13)
  - Infusion related reaction [Recovered/Resolved]
  - Rales [Recovered/Resolved]
  - Pleural effusion [Not Recovered/Not Resolved]
  - Tremor [Recovered/Resolved]
  - Oropharyngeal pain [Recovered/Resolved]
  - Chest pain [Recovered/Resolved]
  - Acne pustular [Recovered/Resolved]
  - Acne [Not Recovered/Not Resolved]
  - Xeroderma [Not Recovered/Not Resolved]
  - Rash [Recovered/Resolved]
  - Arthralgia [Unknown]
  - Pain in extremity [Unknown]
  - Incorrect dose administered [Recovered/Resolved]

NARRATIVE: CASE EVENT DATE: 20250506
